FAERS Safety Report 24787608 (Version 1)
Quarter: 2024Q4

REPORT INFORMATION
  Report Type: Report from Study
  Country: FR (occurrence: FR)
  Receive Date: 20241230
  Receipt Date: 20241230
  Transmission Date: 20250115
  Serious: Yes (Hospitalization, Other)
  Sender: ABBVIE
  Company Number: FR-ABBVIE-6065092

PATIENT
  Age: 26 Year
  Sex: Male
  Weight: 74 kg

DRUGS (3)
  1. UPADACITINIB [Suspect]
     Active Substance: UPADACITINIB
     Indication: Crohn^s disease
     Route: 048
     Dates: start: 20240531, end: 20241007
  2. BUDESONIDE [Concomitant]
     Active Substance: BUDESONIDE
     Indication: Crohn^s disease
     Dates: start: 20230612
  3. CIPROFLOXACIN [Concomitant]
     Active Substance: CIPROFLOXACIN
     Indication: Crohn^s disease
     Route: 048
     Dates: start: 20241007, end: 20241104

REACTIONS (3)
  - Fistula of small intestine [Recovered/Resolved]
  - Inflammation [Recovered/Resolved]
  - Effusion [Recovered/Resolved]

NARRATIVE: CASE EVENT DATE: 20241007
